FAERS Safety Report 21036084 (Version 1)
Quarter: 2022Q3

REPORT INFORMATION
  Report Type: Spontaneous
  Country: US (occurrence: US)
  Receive Date: 20220701
  Receipt Date: 20220701
  Transmission Date: 20221027
  Serious: No
  Sender: FDA-Public Use
  Company Number: US-THERAPEUTICSMD-2021TMD02963

PATIENT
  Sex: Female

DRUGS (1)
  1. IMVEXXY [Suspect]
     Active Substance: ESTRADIOL
     Indication: Atrophic vulvovaginitis
     Dosage: UNK
     Route: 067
     Dates: start: 202109

REACTIONS (1)
  - Vulvovaginal pain [Not Recovered/Not Resolved]

NARRATIVE: CASE EVENT DATE: 20210101
